FAERS Safety Report 18412436 (Version 2)
Quarter: 2020Q4

REPORT INFORMATION
  Report Type: Spontaneous
  Country: PT (occurrence: PT)
  Receive Date: 20201021
  Receipt Date: 20201102
  Transmission Date: 20210114
  Serious: Yes (Life-Threatening, Other)
  Sender: FDA-Public Use
  Company Number: PT-SANOFI-AVENTIS-2013SA051308

PATIENT

DRUGS (8)
  1. BUDESONIDE. [Interacting]
     Active Substance: BUDESONIDE
     Indication: ASTHMA
     Dosage: NASAL SPRAY DAILY
     Route: 045
  2. PARACETAMOL [Suspect]
     Active Substance: ACETAMINOPHEN
     Indication: HEADACHE
     Dosage: 40 MG/ML
     Route: 048
  3. MONTELUKAST SODIUM. [Interacting]
     Active Substance: MONTELUKAST SODIUM
     Indication: ASTHMA
  4. MONTELUKAST SODIUM. [Interacting]
     Active Substance: MONTELUKAST SODIUM
     Indication: RHINITIS ALLERGIC
     Dosage: UNK UNK, QD
  5. PARACETAMOL [Suspect]
     Active Substance: ACETAMINOPHEN
     Indication: ALLERGY TEST
  6. XYZAL [Suspect]
     Active Substance: LEVOCETIRIZINE DIHYDROCHLORIDE
     Indication: RHINITIS ALLERGIC
     Dosage: DAILY
     Route: 065
  7. IBUPROFEN. [Concomitant]
     Active Substance: IBUPROFEN
     Indication: HEADACHE
     Dosage: GIVEN ON TWO OCCASIONS
     Route: 048
  8. PARACETAMOL [Suspect]
     Active Substance: ACETAMINOPHEN
     Indication: HEADACHE
     Dosage: 290 MG
     Route: 048

REACTIONS (15)
  - Eosinophilia [Recovered/Resolved]
  - Headache [Unknown]
  - Respiratory disorder [Recovered/Resolved]
  - Angioedema [Recovered/Resolved]
  - Condition aggravated [Unknown]
  - Respiratory distress [Unknown]
  - Drug interaction [Recovered/Resolved]
  - Dyspnoea [Unknown]
  - Anaphylactic reaction [Recovered/Resolved]
  - Urticaria [Recovered/Resolved]
  - Cough [Recovered/Resolved]
  - Bronchospasm [Recovered/Resolved]
  - Loss of consciousness [Unknown]
  - Wheezing [Unknown]
  - Vomiting [Unknown]
